FAERS Safety Report 4569277-6 (Version None)
Quarter: 2005Q1

REPORT INFORMATION
  Report Type: 
  Country: None (occurrence: None)
  Receive Date: 20050203
  Receipt Date: 20050125
  Transmission Date: 20050727
  Serious: Yes (Hospitalization, Other)
  Sender: FDA-Public Use
  Company Number: US-GLAXOSMITHKLINE-A0542098A

PATIENT
  Age: 73 Year
  Sex: Female
  Weight: 54 kg

DRUGS (9)
  1. TUMS E-X TABLETS, ASSORTED BERRIES [Suspect]
     Route: 048
     Dates: start: 20020101
  2. OS-CAL 500 [Suspect]
     Route: 048
     Dates: start: 20041214
  3. LOTENSIN [Concomitant]
     Route: 048
  4. LASIX [Concomitant]
     Route: 048
  5. SPIRONOLACTONE [Concomitant]
     Route: 048
  6. ASPIRIN [Concomitant]
     Route: 048
  7. DARVOCET [Concomitant]
     Indication: PAIN
     Route: 048
  8. LIPITOR [Concomitant]
     Indication: BLOOD CHOLESTEROL INCREASED
     Route: 048
  9. PREMPRO [Concomitant]

REACTIONS (5)
  - HYPERCALCAEMIA [None]
  - HYPERPARATHYROIDISM [None]
  - LOCAL SWELLING [None]
  - STOMACH DISCOMFORT [None]
  - THYROID NEOPLASM [None]
